FAERS Safety Report 18731952 (Version 1)
Quarter: 2021Q1

REPORT INFORMATION
  Report Type: Spontaneous
  Country: FR (occurrence: FR)
  Receive Date: 20210112
  Receipt Date: 20210112
  Transmission Date: 20210419
  Serious: Yes (Other)
  Sender: FDA-Public Use
  Company Number: FR-PFIZER INC-2021013831

PATIENT
  Age: 88 Year
  Sex: Male
  Weight: 75 kg

DRUGS (10)
  1. IRBESARTAN. [Suspect]
     Active Substance: IRBESARTAN
     Indication: HYPERTENSION
     Dosage: 75 MG, 1X/DAY
     Route: 048
     Dates: start: 20201101
  2. HALDOL [Suspect]
     Active Substance: HALOPERIDOL
     Dosage: 0.2 MG, 1X/DAY
     Route: 048
     Dates: start: 20201023, end: 20201108
  3. ABASAGLAR [Suspect]
     Active Substance: INSULIN GLARGINE
     Indication: DIABETES MELLITUS
     Dosage: UNK
     Route: 058
     Dates: start: 20201029
  4. OXAZEPAM. [Suspect]
     Active Substance: OXAZEPAM
     Dosage: 5 MG, 1X/DAY
     Route: 048
  5. NEBIVOLOL. [Suspect]
     Active Substance: NEBIVOLOL
     Indication: HYPERTENSION
     Dosage: 5 MG, 1X/DAY
     Route: 048
  6. ROSUVASTATINE [ROSUVASTATIN] [Suspect]
     Active Substance: ROSUVASTATIN
     Dosage: 5 MG, 1X/DAY
     Route: 048
  7. EZETROL [Suspect]
     Active Substance: EZETIMIBE
     Dosage: 10 MG, 1X/DAY
     Route: 048
  8. FENTANYL. [Suspect]
     Active Substance: FENTANYL
     Dosage: 12 UG, Q1HR
     Route: 062
     Dates: start: 20201002
  9. XARELTO [Suspect]
     Active Substance: RIVAROXABAN
     Dosage: 15 MG, 1X/DAY
     Route: 048
  10. PANTOPRAZOLE [Suspect]
     Active Substance: PANTOPRAZOLE
     Dosage: 40 MG, 1X/DAY
     Route: 048
     Dates: start: 20201026

REACTIONS (1)
  - Electrocardiogram QT prolonged [Not Recovered/Not Resolved]

NARRATIVE: CASE EVENT DATE: 20201113
